FAERS Safety Report 15050671 (Version 1)
Quarter: 2018Q3

REPORT INFORMATION
  Report Type: Report from Study
  Country: MX (occurrence: MX)
  Receive Date: 20180622
  Receipt Date: 20180622
  Transmission Date: 20181010
  Serious: Yes (Hospitalization)
  Sender: FDA-Public Use
  Company Number: MX-BAYER-2018-114238

PATIENT
  Age: 60 Year
  Sex: Female

DRUGS (5)
  1. CARBAPENEMS [Suspect]
     Active Substance: UNSPECIFIED INGREDIENT
  2. IMIPENEM [Suspect]
     Active Substance: IMIPENEM
  3. VANCOMYCIN [Suspect]
     Active Substance: VANCOMYCIN
  4. MEROPENEM. [Suspect]
     Active Substance: MEROPENEM
  5. MOXIFLOXACIN. [Suspect]
     Active Substance: MOXIFLOXACIN

REACTIONS (1)
  - Clostridium difficile infection [None]
